FAERS Safety Report 9980916 (Version 1)
Quarter: 2014Q1

REPORT INFORMATION
  Report Type: Spontaneous
  Country: US (occurrence: US)
  Receive Date: 20140307
  Receipt Date: 20140307
  Transmission Date: 20141002
  Serious: No
  Sender: FDA-Public Use
  Company Number: US-PFIZER INC-2014062011

PATIENT
  Age: 50 Year
  Sex: Female

DRUGS (7)
  1. XELJANZ [Suspect]
     Indication: RHEUMATOID ARTHRITIS
     Dosage: 5 MG, 2X/DAY
     Route: 048
     Dates: start: 201402
  2. FOLIC ACID [Concomitant]
     Dosage: UNK
  3. METHOTREXATE [Concomitant]
     Dosage: UNK
  4. XANAX [Concomitant]
     Dosage: UNK
  5. OXYCODONE [Concomitant]
     Dosage: UNK
  6. OXYCONTIN [Concomitant]
     Dosage: UNK
  7. COMBIVENT [Concomitant]
     Dosage: UNK

REACTIONS (1)
  - Rhinorrhoea [Unknown]
